FAERS Safety Report 17045652 (Version 1)
Quarter: 2019Q4

REPORT INFORMATION
  Report Type: Spontaneous
  Country: US (occurrence: US)
  Receive Date: 20191118
  Receipt Date: 20191118
  Transmission Date: 20200122
  Serious: No
  Sender: FDA-Public Use
  Company Number: NVSC2019US038086

PATIENT
  Age: 56 Year
  Sex: Female

DRUGS (4)
  1. INFLIXIMAB [Suspect]
     Active Substance: INFLIXIMAB
     Indication: COLITIS ULCERATIVE
     Route: 065
  2. VEDOLIZUMAB [Suspect]
     Active Substance: VEDOLIZUMAB
     Indication: COLITIS ULCERATIVE
     Route: 065
  3. STEROIDS [Suspect]
     Active Substance: UNSPECIFIED INGREDIENT
     Indication: COLITIS ULCERATIVE
     Route: 065
  4. ADALIMUMAB [Suspect]
     Active Substance: ADALIMUMAB
     Indication: COLITIS ULCERATIVE
     Route: 065

REACTIONS (1)
  - Drug resistance [Unknown]
